FAERS Safety Report 7034863-0 (Version None)
Quarter: 2010Q4

REPORT INFORMATION
  Report Type: 
  Country: None (occurrence: None)
  Receive Date: 20101008
  Receipt Date: 20100930
  Transmission Date: 20110411
  Serious: Yes (Hospitalization)
  Sender: FDA-Public Use
  Company Number: CO-ROCHE-729007

PATIENT
  Sex: Female

DRUGS (1)
  1. BONIVA [Suspect]
     Indication: OSTEOPOROSIS
     Dosage: LAST INFUSION WAS ON 10 SEPTEMBER 2010
     Route: 042
     Dates: start: 20091210

REACTIONS (2)
  - ADVERSE DRUG REACTION [None]
  - PULMONARY EMBOLISM [None]
